FAERS Safety Report 19701517 (Version 1)
Quarter: 2021Q3

REPORT INFORMATION
  Report Type: Report from Study
  Country: US (occurrence: US)
  Receive Date: 20210814
  Receipt Date: 20210814
  Transmission Date: 20211014
  Serious: No
  Sender: FDA-Public Use
  Company Number: NVSC2021US173071

PATIENT
  Sex: Female

DRUGS (1)
  1. COSENTYX [Suspect]
     Active Substance: SECUKINUMAB
     Indication: PROSTATIC SPECIFIC ANTIGEN
     Dosage: 150 MG, BENEATH THE SKIN, USUALLY VIA INJECTION, QW X 5 WEEKS
     Route: 058

REACTIONS (2)
  - Contusion [Unknown]
  - Blood blister [Unknown]
